FAERS Safety Report 17706483 (Version 1)
Quarter: 2020Q2

REPORT INFORMATION
  Report Type: Report from Study
  Country: CA (occurrence: CA)
  Receive Date: 20200424
  Receipt Date: 20200424
  Transmission Date: 20200714
  Serious: Yes (Other)
  Sender: FDA-Public Use
  Company Number: CA-JNJFOC-20200427054

PATIENT
  Sex: Male
  Weight: 62 kg

DRUGS (1)
  1. STELARA [Suspect]
     Active Substance: USTEKINUMAB
     Indication: CROHN^S DISEASE
     Route: 042
     Dates: start: 20200316, end: 20200421

REACTIONS (2)
  - Treatment failure [Unknown]
  - Colectomy [Unknown]

NARRATIVE: CASE EVENT DATE: 2020
